FAERS Safety Report 7401950-4 (Version None)
Quarter: 2011Q1

REPORT INFORMATION
  Report Type: 
  Country: None (occurrence: None)
  Receive Date: 20110330
  Receipt Date: 20110316
  Transmission Date: 20110831
  Serious: Yes (Other)
  Sender: FDA-Public Use
  Company Number: 2011AP000481

PATIENT
  Age: 31 Year
  Sex: Female

DRUGS (2)
  1. APO-DIVALPROEX (VALPROATE SEMISODIUM) [Suspect]
     Indication: MENTAL DISORDER
     Dosage: 1 TAB;QD; PO
     Route: 048
  2. RISPERIDONE [Concomitant]

REACTIONS (1)
  - BLOOD CREATININE INCREASED [None]
